FAERS Safety Report 9215485 (Version 1)
Quarter: 2013Q2

REPORT INFORMATION
  Report Type: Spontaneous
  Country: US (occurrence: US)
  Receive Date: 20130406
  Receipt Date: 20130406
  Transmission Date: 20140414
  Serious: No
  Sender: FDA-Public Use
  Company Number: US-009507513-1303USA013099

PATIENT
  Age: 48 Year
  Sex: Male

DRUGS (2)
  1. PROVENTIL [Suspect]
     Indication: ASTHMA
     Dosage: TAKEN 2 PUFFS A COUPLE TIMES OF DAY
     Route: 055
  2. ADVAIR [Concomitant]

REACTIONS (1)
  - Breath alcohol test positive [Unknown]
